FAERS Safety Report 7318569-6 (Version None)
Quarter: 2011Q1

REPORT INFORMATION
  Report Type: 
  Country: None (occurrence: None)
  Receive Date: 20110228
  Receipt Date: 20110215
  Transmission Date: 20110831
  Serious: Yes (Hospitalization)
  Sender: FDA-Public Use
  Company Number: IT-JNJFOC-20110206144

PATIENT
  Age: 5 Year
  Sex: Female

DRUGS (3)
  1. CARBAMAZEPINE [Concomitant]
  2. IBUPROFEN [Suspect]
     Indication: PYREXIA
     Route: 065
  3. LEVETIRACETAM [Concomitant]

REACTIONS (1)
  - RENAL FAILURE ACUTE [None]
